FAERS Safety Report 14768256 (Version 3)
Quarter: 2018Q2

REPORT INFORMATION
  Report Type: Report from Study
  Country: None (occurrence: DE)
  Receive Date: 20180417
  Receipt Date: 20180605
  Transmission Date: 20180711
  Serious: Yes (Other)
  Sender: FDA-Public Use
  Company Number: DE-BAUSCH-BL-2018-011278

PATIENT
  Age: 43 Year
  Sex: Male

DRUGS (6)
  1. 3,4-METHYLENEDIOXYPYROVALERONE [Suspect]
     Active Substance: METHYLENEDIOXYPYROVALERONE HYDROCHLORIDE
     Indication: PRODUCT USED FOR UNKNOWN INDICATION
     Route: 065
  2. OXAZEPAM. [Suspect]
     Active Substance: OXAZEPAM
     Indication: PRODUCT USED FOR UNKNOWN INDICATION
     Route: 065
  3. PREGABALIN. [Suspect]
     Active Substance: PREGABALIN
     Indication: PRODUCT USED FOR UNKNOWN INDICATION
     Route: 065
  4. METHYLONE [Suspect]
     Active Substance: METHYLPREDNISOLONE
     Indication: PRODUCT USED FOR UNKNOWN INDICATION
     Route: 065
  5. LEVOMETHADONE [Suspect]
     Active Substance: LEVOMETHADONE
     Indication: PRODUCT USED FOR UNKNOWN INDICATION
     Route: 065
  6. DIAZEPAM. [Suspect]
     Active Substance: DIAZEPAM
     Indication: PRODUCT USED FOR UNKNOWN INDICATION
     Route: 065

REACTIONS (10)
  - Abnormal behaviour [Unknown]
  - Injury [Unknown]
  - Aggression [Unknown]
  - Toxicity to various agents [Unknown]
  - Restlessness [Unknown]
  - Gait disturbance [Unknown]
  - Mood swings [Unknown]
  - Logorrhoea [Unknown]
  - Dysarthria [Unknown]
  - Agitation [Unknown]
